FAERS Safety Report 16791975 (Version 13)
Quarter: 2020Q1

REPORT INFORMATION
  Report Type: Report from Study
  Country: DE (occurrence: DE)
  Receive Date: 20190910
  Receipt Date: 20200210
  Transmission Date: 20200409
  Serious: Yes (Hospitalization, Other)
  Sender: FDA-Public Use
  Company Number: DE-MYLANLABS-2019M1071737

PATIENT
  Age: 50 Year
  Sex: Female
  Weight: 62 kg

DRUGS (6)
  1. KISQALI [Suspect]
     Active Substance: RIBOCICLIB
     Dosage: 200 MG, QD (SCHEMA 21 DAYS INTAKE, THAN 7 DAYS PAUSE)
     Route: 048
     Dates: start: 20190612
  2. KISQALI [Suspect]
     Active Substance: RIBOCICLIB
     Indication: BREAST CANCER METASTATIC
     Dosage: 600 MG, QD 21 DAYS INTAKE, 7 DAYS PAUSE
     Route: 048
     Dates: start: 20190205, end: 20190210
  3. FULVESTRANT. [Suspect]
     Active Substance: FULVESTRANT
     Indication: BREAST CANCER METASTATIC
     Dosage: 500 MG, QMO (EVERY 4 WEEK)
     Route: 030
     Dates: start: 20190201
  4. KISQALI [Suspect]
     Active Substance: RIBOCICLIB
     Indication: BREAST CANCER
     Dosage: 200 MG, QD (SCHEMA 21 DAYS INTAKE, THAN 7 DAYS PAUSE)
     Route: 048
     Dates: start: 20190227, end: 20190304
  5. KISQALI [Suspect]
     Active Substance: RIBOCICLIB
     Dosage: 400 MG, QD 21 DAYS INTAKE, THAN 7 DAYS PAUSE
     Route: 048
     Dates: start: 20190305, end: 20190611
  6. FULVESTRANT. [Suspect]
     Active Substance: FULVESTRANT
     Dosage: 500 MG, Q4W (EVERY 4 WEEK)
     Route: 030
     Dates: start: 20190201

REACTIONS (7)
  - Sleep disorder [Unknown]
  - Stomatitis [Recovered/Resolved]
  - Urinary tract infection [Recovered/Resolved]
  - Anaemia [Unknown]
  - Pharyngitis [Recovered/Resolved]
  - Blood creatinine increased [Recovering/Resolving]
  - Thrombocytopenia [Recovering/Resolving]

NARRATIVE: CASE EVENT DATE: 20190210
